FAERS Safety Report 23963210 (Version 7)
Quarter: 2024Q3

REPORT INFORMATION
  Report Type: Report from Study
  Country: US (occurrence: US)
  Receive Date: 20240611
  Receipt Date: 20240904
  Transmission Date: 20241017
  Serious: Yes (Other)
  Sender: APELLIS PHARMACEUTICALS
  Company Number: US-APELLIS-2024-APL-0000126

PATIENT

DRUGS (8)
  1. PEGCETACOPLAN [Suspect]
     Active Substance: PEGCETACOPLAN
     Indication: Paroxysmal nocturnal haemoglobinuria
     Dosage: 1080MG TWICE WEEKLY
     Route: 058
     Dates: start: 20240409
  2. PENICILLIN [Concomitant]
     Active Substance: PENICILLIN
     Indication: Product used for unknown indication
     Dosage: BID
  3. SERTRALINE [Concomitant]
     Active Substance: SERTRALINE HYDROCHLORIDE
     Indication: Product used for unknown indication
  4. PRILOSEC [Concomitant]
     Active Substance: OMEPRAZOLE MAGNESIUM
     Indication: Product used for unknown indication
  5. MIRTAZAPINE [Concomitant]
     Active Substance: MIRTAZAPINE
     Indication: Product used for unknown indication
  6. HYDROCHLOROTHIAZIDE [Concomitant]
     Active Substance: HYDROCHLOROTHIAZIDE
     Indication: Product used for unknown indication
  7. FLONASE [Concomitant]
     Active Substance: FLUTICASONE PROPIONATE
     Indication: Product used for unknown indication
  8. FOLIC ACID XTRA [Concomitant]
     Indication: Product used for unknown indication

REACTIONS (15)
  - Chronic kidney disease [Unknown]
  - Pulmonary fibrosis [Unknown]
  - Nausea [Unknown]
  - Injection site discomfort [Recovered/Resolved]
  - Haemoglobin decreased [Unknown]
  - Platelet count decreased [Unknown]
  - Injection site pain [Recovered/Resolved]
  - Diarrhoea [Unknown]
  - Inappropriate schedule of product administration [Unknown]
  - Injection site haematoma [Unknown]
  - Infusion site pain [Unknown]
  - Dyspnoea [Unknown]
  - Renal cyst [Unknown]
  - Injection site haematoma [Unknown]
  - Injection site pain [Unknown]

NARRATIVE: CASE EVENT DATE: 20231101
